FAERS Safety Report 6643418-9 (Version None)
Quarter: 2010Q1

REPORT INFORMATION
  Report Type: 
  Country: None (occurrence: None)
  Receive Date: 20100319
  Receipt Date: 20100311
  Transmission Date: 20100710
  Serious: Yes (Hospitalization)
  Sender: FDA-Public Use
  Company Number: BR-ABBOTT-09P-020-0604656-00

PATIENT
  Sex: Female
  Weight: 56 kg

DRUGS (10)
  1. HUMIRA [Suspect]
     Indication: CROHN'S DISEASE
     Dosage: 160MG LOADING DOSE
     Route: 058
  2. HUMIRA [Suspect]
     Route: 030
  3. HUMIRA [Suspect]
     Route: 058
     Dates: end: 20091101
  4. MESALAZINE [Concomitant]
     Indication: CROHN'S DISEASE
     Route: 048
     Dates: start: 20090201
  5. AZATHIOPRINE [Concomitant]
     Indication: CROHN'S DISEASE
     Route: 048
     Dates: start: 20090201
  6. PREDNISONE [Concomitant]
     Indication: CROHN'S DISEASE
     Route: 048
     Dates: start: 20090201, end: 20100101
  7. OMEPRAZOLE [Concomitant]
     Indication: GASTRIC DISORDER
     Route: 048
     Dates: start: 20090201
  8. FOLIC ACID [Concomitant]
     Indication: PREGNANCY
     Route: 048
     Dates: start: 20090901
  9. HYDROCORTISONE SODIUM SUCCINATE [Concomitant]
     Indication: CROHN'S DISEASE
     Route: 054
     Dates: start: 20100101, end: 20100101
  10. MESALAZINE [Concomitant]
     Route: 054
     Dates: start: 20090201

REACTIONS (7)
  - ABDOMINAL PAIN UPPER [None]
  - ANAEMIA [None]
  - CROHN'S DISEASE [None]
  - DIARRHOEA HAEMORRHAGIC [None]
  - DRUG INEFFECTIVE [None]
  - MALAISE [None]
  - PAIN IN EXTREMITY [None]
